FAERS Safety Report 24051775 (Version 1)
Quarter: 2024Q3

REPORT INFORMATION
  Report Type: Spontaneous
  Country: UA (occurrence: UA)
  Receive Date: 20240704
  Receipt Date: 20240704
  Transmission Date: 20241017
  Serious: Yes (Hospitalization)
  Sender: IPSEN
  Company Number: UA-IPSEN Group, Research and Development-2024-12946

PATIENT
  Age: 43 Year
  Sex: Female

DRUGS (3)
  1. DYSPORT [Suspect]
     Active Substance: ABOBOTULINUMTOXINA
     Indication: Hyperhidrosis
     Dosage: HYPERHIDROSIS OF THE AXILLAE -400 UNITES, GLABELLAR LINES, CROW^S FEET TREATMENT- 150 UNITES. INTRAD
     Route: 030
     Dates: start: 20240625, end: 20240625
  2. DYSPORT [Suspect]
     Active Substance: ABOBOTULINUMTOXINA
     Indication: Skin wrinkling
  3. DYSPORT [Suspect]
     Active Substance: ABOBOTULINUMTOXINA
     Indication: Skin wrinkling

REACTIONS (4)
  - Dizziness [Recovered/Resolved]
  - Visual acuity reduced [Recovered/Resolved]
  - Asthenia [Recovered/Resolved]
  - Prescribed overdose [Unknown]

NARRATIVE: CASE EVENT DATE: 20240625
